FAERS Safety Report 6887422-4 (Version None)
Quarter: 2010Q3

REPORT INFORMATION
  Report Type: 
  Country: None (occurrence: None)
  Receive Date: 20100730
  Receipt Date: 20100423
  Transmission Date: 20110219
  Serious: No
  Sender: FDA-Public Use
  Company Number: A0856484A

PATIENT
  Age: 66 Year
  Sex: Female

DRUGS (3)
  1. SUMATRIPTAN SUCCINATE [Suspect]
     Indication: MIGRAINE
     Dosage: 100MG AS REQUIRED
     Route: 048
  2. ESTRACE [Concomitant]
  3. VITAMINS [Concomitant]

REACTIONS (3)
  - FEELING ABNORMAL [None]
  - GAIT DISTURBANCE [None]
  - THERAPEUTIC RESPONSE DECREASED [None]
